FAERS Safety Report 4908770-0 (Version None)
Quarter: 2006Q1

REPORT INFORMATION
  Report Type: 
  Country: None (occurrence: None)
  Receive Date: 20060210
  Receipt Date: 20051115
  Transmission Date: 20060701
  Serious: No
  Sender: FDA-Public Use
  Company Number: US-GLAXOSMITHKLINE-A0582413A

PATIENT
  Age: 40 Year
  Sex: Female

DRUGS (3)
  1. PAXIL CR [Suspect]
     Indication: DEPRESSION
     Dosage: 25MG PER DAY
     Route: 048
     Dates: start: 20050201, end: 20051110
  2. WELLBUTRIN XL [Suspect]
     Indication: DEPRESSION
     Dosage: 150MG PER DAY
     Route: 048
     Dates: start: 20051001
  3. NO CONCURRENT MEDICATION [Concomitant]

REACTIONS (6)
  - ABNORMAL DREAMS [None]
  - AGITATION [None]
  - CRYING [None]
  - DIZZINESS [None]
  - ELECTRIC SHOCK [None]
  - FEELING HOT AND COLD [None]
